FAERS Safety Report 15927819 (Version 2)
Quarter: 2020Q3

REPORT INFORMATION
  Report Type: Spontaneous
  Country: PT (occurrence: PT)
  Receive Date: 20190206
  Receipt Date: 20190215
  Transmission Date: 20201105
  Serious: Yes (Hospitalization, Other)
  Sender: FDA-Public Use
  Company Number: PT-TEVA-820081ROM

PATIENT
  Age: 36 Year
  Sex: Female

DRUGS (6)
  1. FINGOLIMOD. [Suspect]
     Active Substance: FINGOLIMOD
     Indication: RELAPSING-REMITTING MULTIPLE SCLEROSIS
     Dates: end: 201109
  2. CIPROFLOXACIN. [Suspect]
     Active Substance: CIPROFLOXACIN
     Indication: URINARY TRACT INFECTION
     Route: 065
  3. AMOXICILLIN+CLAVULANIC ACID [Suspect]
     Active Substance: AMOXICILLIN\CLAVULANIC ACID
     Indication: URINARY TRACT INFECTION
     Dosage: 3 CYCLES
     Route: 065
     Dates: start: 201409
  4. CIPROFLOXACIN. [Suspect]
     Active Substance: CIPROFLOXACIN
     Indication: HAEMATOCHEZIA
  5. CIPROFLOXACIN. [Suspect]
     Active Substance: CIPROFLOXACIN
     Indication: DIARRHOEA
  6. CIPROFLOXACIN. [Suspect]
     Active Substance: CIPROFLOXACIN
     Indication: MUCOUS STOOLS

REACTIONS (10)
  - Clostridium test positive [Recovered/Resolved]
  - Rectal tenesmus [Recovered/Resolved]
  - Inflammation [Recovered/Resolved]
  - Clostridium difficile colitis [Recovered/Resolved]
  - Abdominal pain [Recovered/Resolved]
  - Mucous stools [Recovered/Resolved]
  - Diarrhoea haemorrhagic [Recovered/Resolved]
  - Clostridium difficile infection [Recovered/Resolved]
  - Gastrointestinal disorder [Recovered/Resolved]
  - Drug ineffective [Unknown]
